FAERS Safety Report 5499528-5 (Version None)
Quarter: 2007Q4

REPORT INFORMATION
  Report Type: 
  Country: None (occurrence: None)
  Receive Date: 20071026
  Receipt Date: 20071018
  Transmission Date: 20080405
  Serious: Yes (Hospitalization)
  Sender: FDA-Public Use
  Company Number: US-ELI_LILLY_AND_COMPANY-US200710001368

PATIENT
  Sex: Male

DRUGS (6)
  1. CYMBALTA [Suspect]
     Indication: DEPRESSION
     Dosage: 60 MG, DAILY (1/D)
     Dates: start: 20040101
  2. CYMBALTA [Suspect]
     Dosage: 30 MG, DAILY (1/D)
     Dates: start: 20070809
  3. XANAX [Concomitant]
     Dosage: 4 MG, DAILY (1/D)
  4. GABAPENTIN [Concomitant]
     Dosage: 300 MG, DAILY (1/D)
  5. NAMENDA [Concomitant]
  6. DIAZEPAM [Concomitant]

REACTIONS (1)
  - DYSTONIA [None]
